FAERS Safety Report 7197358-X (Version None)
Quarter: 2010Q4

REPORT INFORMATION
  Report Type: 
  Country: None (occurrence: None)
  Receive Date: 20101227
  Receipt Date: 20101217
  Transmission Date: 20110411
  Serious: Yes (Other)
  Sender: FDA-Public Use
  Company Number: US-PFIZER INC-2010174883

PATIENT
  Sex: Male
  Weight: 56.689 kg

DRUGS (8)
  1. CORTEF [Suspect]
     Indication: HYPERSENSITIVITY
     Dosage: 5MG SIX TABLETS IN THE MORNING AND 5MG FOUR TABLETS IN THE EVENING
     Route: 048
     Dates: start: 20101101
  2. CORTEF [Suspect]
     Indication: PRURITUS GENERALISED
  3. HYDROCORTISONE [Concomitant]
     Dosage: UNK
  4. QUETIAPINE [Concomitant]
     Dosage: UNK
  5. METFORMIN [Concomitant]
     Indication: TYPE 2 DIABETES MELLITUS
     Dosage: UNK
  6. NAMENDA [Concomitant]
     Dosage: UNK
  7. SYNTHROID [Concomitant]
     Indication: THYROID DISORDER
     Dosage: UNK
  8. BUSPIRONE [Concomitant]
     Dosage: UNK

REACTIONS (2)
  - BLOOD TESTOSTERONE DECREASED [None]
  - DRUG INEFFECTIVE [None]
